FAERS Safety Report 11868488 (Version 1)
Quarter: 2015Q4

REPORT INFORMATION
  Report Type: Spontaneous
  Country: US (occurrence: US)
  Receive Date: 20151225
  Receipt Date: 20151225
  Transmission Date: 20160305
  Serious: No
  Sender: FDA-Public Use
  Company Number: US-DRREDDYS-USA/USA/15/0046682

PATIENT
  Age: 71 Year
  Sex: Female

DRUGS (3)
  1. HABITROL [Suspect]
     Active Substance: NICOTINE
     Indication: SMOKING CESSATION THERAPY
     Route: 062
     Dates: start: 201501, end: 201501
  2. HABITROL [Suspect]
     Active Substance: NICOTINE
     Route: 062
     Dates: start: 201502
  3. HABITROL [Suspect]
     Active Substance: NICOTINE
     Route: 062

REACTIONS (3)
  - Product quality issue [Unknown]
  - Nicotine dependence [Not Recovered/Not Resolved]
  - Drug ineffective [Unknown]
